FAERS Safety Report 8860566 (Version 2)
Quarter: 2012Q4

REPORT INFORMATION
  Report Type: 
  Country: VE (occurrence: VE)
  Receive Date: 20121025
  Receipt Date: 20121101
  Transmission Date: 20130627
  Serious: Yes (Death)
  Sender: FDA-Public Use
  Company Number: VE-PFIZER INC-2012265419

PATIENT
  Age: 83 Year
  Sex: Male

DRUGS (2)
  1. LIPITOR [Suspect]
     Indication: HYPERCHOLESTEROLEMIA
     Dosage: 20 mg, 1x/day
     Route: 048
  2. ISORDIL [Concomitant]
     Indication: ANGINA PECTORIS
     Dosage: 5 mg, as needed
     Route: 060

REACTIONS (1)
  - Non-Hodgkin^s lymphoma [Fatal]
